FAERS Safety Report 4491353-7 (Version None)
Quarter: 2004Q4

REPORT INFORMATION
  Report Type: 
  Country: None (occurrence: None)
  Receive Date: 20041029
  Receipt Date: 20041022
  Transmission Date: 20050328
  Serious: Yes (Other)
  Sender: FDA-Public Use
  Company Number: KII-2004-0013659

PATIENT
  Age: 67 Year
  Sex: Male

DRUGS (1)
  1. MORPHINE SULFATE [Suspect]
     Indication: PAIN
     Dosage: ORAL
     Route: 048

REACTIONS (8)
  - BACK INJURY [None]
  - CONFUSIONAL STATE [None]
  - FALL [None]
  - HYPOTENSION [None]
  - MEDICATION ERROR [None]
  - RASH [None]
  - SEPSIS [None]
  - TACHYCARDIA [None]
